FAERS Safety Report 25478185 (Version 1)
Quarter: 2025Q2

REPORT INFORMATION
  Report Type: Spontaneous
  Country: FR (occurrence: FR)
  Receive Date: 20250625
  Receipt Date: 20250625
  Transmission Date: 20250716
  Serious: Yes (Death, Hospitalization, Other)
  Sender: SANDOZ
  Company Number: None

PATIENT
  Age: 74 Year
  Sex: Female

DRUGS (9)
  1. BORTEZOMIB [Suspect]
     Active Substance: BORTEZOMIB
     Indication: Waldenstrom^s macroglobulinaemia
     Route: 065
     Dates: start: 2005, end: 201408
  2. CYCLOPHOSPHAMIDE [Suspect]
     Active Substance: CYCLOPHOSPHAMIDE
     Indication: Waldenstrom^s macroglobulinaemia
     Route: 065
     Dates: start: 2005, end: 201408
  3. DEXAMETHASONE [Suspect]
     Active Substance: DEXAMETHASONE
     Indication: Waldenstrom^s macroglobulinaemia
     Route: 065
     Dates: start: 2005, end: 201408
  4. DOXORUBICIN HYDROCHLORIDE [Suspect]
     Active Substance: DOXORUBICIN HYDROCHLORIDE
     Indication: Waldenstrom^s macroglobulinaemia
     Route: 065
     Dates: start: 200503, end: 201408
  5. FLUDARABINE PHOSPHATE [Suspect]
     Active Substance: FLUDARABINE PHOSPHATE
     Indication: Waldenstrom^s macroglobulinaemia
     Route: 065
     Dates: start: 2005, end: 201408
  6. IBRUTINIB [Suspect]
     Active Substance: IBRUTINIB
     Indication: Waldenstrom^s macroglobulinaemia
     Dosage: 420 MILLIGRAM DAILY
     Route: 065
     Dates: start: 201506
  7. RITUXIMAB [Suspect]
     Active Substance: RITUXIMAB
     Indication: Waldenstrom^s macroglobulinaemia
     Route: 065
     Dates: start: 2005, end: 201408
  8. VINCRISTINE SULFATE [Suspect]
     Active Substance: VINCRISTINE SULFATE
     Indication: Waldenstrom^s macroglobulinaemia
     Route: 065
     Dates: start: 2005, end: 201408
  9. IDELALISIB [Concomitant]
     Active Substance: IDELALISIB
     Indication: Waldenstrom^s macroglobulinaemia
     Route: 065
     Dates: start: 201409, end: 201503

REACTIONS (6)
  - Meningitis cryptococcal [Fatal]
  - Cryptococcosis [Fatal]
  - Encephalitis [Fatal]
  - Abscess limb [Unknown]
  - Waldenstrom^s macroglobulinaemia [Unknown]
  - Product use in unapproved indication [Unknown]

NARRATIVE: CASE EVENT DATE: 20150601
